FAERS Safety Report 6299594-3 (Version None)
Quarter: 2009Q3

REPORT INFORMATION
  Report Type: 
  Country: None (occurrence: None)
  Receive Date: 20090805
  Receipt Date: 20090805
  Transmission Date: 20100115
  Serious: Yes (Hospitalization)
  Sender: FDA-Public Use
  Company Number: None

PATIENT
  Age: 30 Year
  Sex: Female
  Weight: 83.9154 kg

DRUGS (1)
  1. REMICADE [Suspect]
     Indication: JUVENILE ARTHRITIS
     Dosage: Q8W IV DRIP
     Route: 041
     Dates: start: 20080130, end: 20090615

REACTIONS (2)
  - LYME DISEASE [None]
  - MEMORY IMPAIRMENT [None]
